FAERS Safety Report 6874763-X (Version None)
Quarter: 2010Q3

REPORT INFORMATION
  Report Type: 
  Country: None (occurrence: None)
  Receive Date: 20100723
  Receipt Date: 20100713
  Transmission Date: 20110219
  Serious: Yes (Other)
  Sender: FDA-Public Use
  Company Number: 2010SP038940

PATIENT
  Sex: Female

DRUGS (4)
  1. SAPHRIS [Suspect]
     Indication: BIPOLAR I DISORDER
     Dosage: 5 MG;BID;SL
     Route: 060
     Dates: start: 20100708, end: 20100710
  2. DEPAKOTE [Concomitant]
  3. TRILEPTAL [Concomitant]
  4. VALIUM [Concomitant]

REACTIONS (2)
  - OEDEMA MOUTH [None]
  - SEDATION [None]
